FAERS Safety Report 19959306 (Version 1)
Quarter: 2021Q4

REPORT INFORMATION
  Report Type: Spontaneous
  Country: US (occurrence: US)
  Receive Date: 20211015
  Receipt Date: 20211015
  Transmission Date: 20220303
  Serious: No
  Sender: FDA-Public Use
  Company Number: US-PFIZER INC-2021387347

PATIENT
  Sex: Female

DRUGS (2)
  1. LYRICA [Suspect]
     Active Substance: PREGABALIN
     Dosage: UNK
  2. TRESIBA [Concomitant]
     Active Substance: INSULIN DEGLUDEC
     Dosage: UNK

REACTIONS (2)
  - Malaise [Unknown]
  - Nausea [Unknown]
